FAERS Safety Report 6714901-2 (Version None)
Quarter: 2010Q2

REPORT INFORMATION
  Report Type: 
  Country: None (occurrence: None)
  Receive Date: 20100506
  Receipt Date: 20100506
  Transmission Date: 20101027
  Serious: Yes (Other)
  Sender: FDA-Public Use
  Company Number: None

PATIENT
  Sex: Female
  Weight: 9.0719 kg

DRUGS (3)
  1. CHILDREN'S TYLENOL SUSPENSION [Suspect]
     Indication: GINGIVAL PAIN
     Dosage: PER WEIGHT
     Dates: start: 20100429, end: 20100505
  2. CHILDREN'S TYLENOL SUSPENSION [Suspect]
     Indication: PYREXIA
     Dosage: PER WEIGHT
     Dates: start: 20100429, end: 20100505
  3. CHILDREN'S BENADRYL ALLERGY [Suspect]
     Indication: RHINORRHOEA
     Dosage: PER WEIGHT
     Dates: start: 20100429, end: 20100505

REACTIONS (9)
  - COUGH [None]
  - DYSPHONIA [None]
  - EAR INFECTION [None]
  - GENERAL PHYSICAL HEALTH DETERIORATION [None]
  - LETHARGY [None]
  - PRODUCT QUALITY ISSUE [None]
  - RETCHING [None]
  - SKIN DISCOLOURATION [None]
  - VOMITING [None]
